FAERS Safety Report 23502025 (Version 2)
Quarter: 2024Q1

REPORT INFORMATION
  Report Type: Spontaneous
  Country: CN (occurrence: CN)
  Receive Date: 20240208
  Receipt Date: 20240209
  Transmission Date: 20240410
  Serious: Yes (Other)
  Sender: FDA-Public Use
  Company Number: CN-ELI_LILLY_AND_COMPANY-CN202402000254

PATIENT
  Age: 41 Year
  Sex: Female

DRUGS (3)
  1. HUMALOG [Suspect]
     Active Substance: INSULIN LISPRO
     Indication: Product used for unknown indication
     Dosage: 7 INTERNATIONAL UNIT, BID
     Route: 058
     Dates: start: 20240111, end: 20240112
  2. INSULIN DEGLUDEC [Concomitant]
     Active Substance: INSULIN DEGLUDEC
     Indication: Product used for unknown indication
     Dosage: 16 INTERNATIONAL UNIT, DAILY
     Route: 058
     Dates: start: 20240111, end: 20240112
  3. INSULIN ASPART [Concomitant]
     Active Substance: INSULIN ASPART
     Indication: Product used for unknown indication
     Dosage: 1 DOSAGE FORM, DAILY
     Route: 058
     Dates: start: 20240111, end: 20240112

REACTIONS (2)
  - Dermatitis allergic [Recovering/Resolving]
  - Blood glucose abnormal [Unknown]

NARRATIVE: CASE EVENT DATE: 20240112
